FAERS Safety Report 5871255-1 (Version None)
Quarter: 2008Q3

REPORT INFORMATION
  Report Type: 
  Country: None (occurrence: None)
  Receive Date: 20080905
  Receipt Date: 20080827
  Transmission Date: 20090109
  Serious: Yes (Disabling)
  Sender: FDA-Public Use
  Company Number: DE-JNJFOC-20080806122

PATIENT
  Age: 67 Year
  Sex: Male

DRUGS (1)
  1. TAVANIC [Suspect]
     Indication: PHARYNGITIS
     Dosage: FILM COATED TABLETS
     Route: 048

REACTIONS (4)
  - HAEMATOMA [None]
  - MUSCLE SPASMS [None]
  - TENDON DISORDER [None]
  - TENDONITIS [None]
